FAERS Safety Report 20742436 (Version 3)
Quarter: 2022Q2

REPORT INFORMATION
  Report Type: Spontaneous
  Country: US (occurrence: US)
  Receive Date: 20220424
  Receipt Date: 20220609
  Transmission Date: 20220721
  Serious: No
  Sender: FDA-Public Use
  Company Number: US-JNJFOC-20220433891

PATIENT
  Age: 45 Year
  Sex: Male
  Weight: 90.800 kg

DRUGS (8)
  1. RISPERDAL CONSTA [Suspect]
     Active Substance: RISPERIDONE
     Indication: Schizophrenia
     Route: 030
  2. RISPERDAL CONSTA [Suspect]
     Active Substance: RISPERIDONE
  3. RISPERDAL CONSTA [Suspect]
     Active Substance: RISPERIDONE
  4. RISPERDAL CONSTA [Suspect]
     Active Substance: RISPERIDONE
  5. BENZTROPINE [Concomitant]
     Active Substance: BENZTROPINE
     Indication: Tremor
     Route: 065
  6. LITHIUM [Concomitant]
     Active Substance: LITHIUM
     Indication: Drug therapy
     Dosage: HS
     Route: 065
  7. PRAZOSIN [Concomitant]
     Active Substance: PRAZOSIN
     Indication: Off label use
     Dosage: HS
     Route: 065
  8. PROPALOL [Concomitant]
     Indication: Off label use
     Route: 065

REACTIONS (3)
  - Product container issue [Unknown]
  - Product dose omission issue [Unknown]
  - Accidental exposure to product [Unknown]

NARRATIVE: CASE EVENT DATE: 20220418
